FAERS Safety Report 4516525-4 (Version None)
Quarter: 2004Q4

REPORT INFORMATION
  Report Type: 
  Country: None (occurrence: None)
  Receive Date: 20041029
  Receipt Date: 20040706
  Transmission Date: 20050328
  Serious: No
  Sender: FDA-Public Use
  Company Number: 2004-118298-NL

PATIENT
  Age: 39 Year
  Sex: Female
  Weight: 62.3 kg

DRUGS (2)
  1. NUVARING [Suspect]
     Indication: CONTRACEPTION
     Dosage: DF DAILY VAGINAL
     Route: 067
     Dates: start: 20030301
  2. MULTI-VITAMINS [Concomitant]

REACTIONS (5)
  - FATIGUE [None]
  - MENORRHAGIA [None]
  - METRORRHAGIA [None]
  - OEDEMA PERIPHERAL [None]
  - PAIN IN EXTREMITY [None]
